FAERS Safety Report 7630061-8 (Version None)
Quarter: 2011Q3

REPORT INFORMATION
  Report Type: 
  Country: None (occurrence: None)
  Receive Date: 20110722
  Receipt Date: 20110712
  Transmission Date: 20111222
  Serious: Yes (Hospitalization)
  Sender: FDA-Public Use
  Company Number: ES-ELI_LILLY_AND_COMPANY-ES200912004116

PATIENT
  Sex: Male
  Weight: 80 kg

DRUGS (11)
  1. NOLOTIL /06276702/ [Concomitant]
     Dates: start: 20091119, end: 20091125
  2. FOLIC ACID [Concomitant]
     Dates: start: 20091103, end: 20091203
  3. VIT B12 [Concomitant]
     Dates: start: 20091103, end: 20091203
  4. ZOMETA [Concomitant]
     Dates: start: 20091106, end: 20091125
  5. CISPLATIN [Suspect]
     Indication: NON-SMALL CELL LUNG CANCER
     Dosage: 144.9 MG, EVERY 3 WEEKS
     Route: 042
     Dates: start: 20091106, end: 20091125
  6. DURAGESIC-12 [Concomitant]
     Dates: start: 20091113
  7. VENOFER [Concomitant]
     Dates: start: 20091106, end: 20091125
  8. ZOFRAN [Concomitant]
     Dates: start: 20091125, end: 20091203
  9. PEMETREXED [Suspect]
     Indication: NON-SMALL CELL LUNG CANCER
     Dosage: 965.8 MG, EVERY 3 WEEKS
     Route: 042
     Dates: start: 20091106, end: 20091125
  10. AXITINIB [Suspect]
     Indication: NON-SMALL CELL LUNG CANCER
     Dosage: 5 MG, QD
     Route: 048
     Dates: start: 20091107
  11. AXITINIB [Suspect]
     Dosage: 7 MG, 2/D
     Route: 048
     Dates: start: 20091125, end: 20091201

REACTIONS (4)
  - NAUSEA [None]
  - PNEUMOTHORAX [None]
  - ASTHENIA [None]
  - VOMITING [None]
